FAERS Safety Report 5466500-0 (Version None)
Quarter: 2007Q3

REPORT INFORMATION
  Report Type: 
  Country: None (occurrence: None)
  Receive Date: 20070820
  Receipt Date: 20070607
  Transmission Date: 20080115
  Serious: No
  Sender: FDA-Public Use
  Company Number: WAES 0706USA01211

PATIENT
  Age: 52 Year
  Sex: Female

DRUGS (10)
  1. JANUVIA [Suspect]
     Indication: BLOOD GLUCOSE
     Dosage: 100 MG/DAILY/PO
     Route: 048
     Dates: start: 20070517
  2. ACTOS [Concomitant]
  3. AMARYL [Concomitant]
  4. DIOVAN [Concomitant]
  5. LANTUS [Concomitant]
  6. LEVOTHYROXINE SODIUM [Concomitant]
  7. LIPITOR [Concomitant]
  8. HYDROCHLOROTHIAZIDE [Concomitant]
  9. METFORMIN HCL [Concomitant]
  10. METOPROLOL TARTRATE [Concomitant]

REACTIONS (1)
  - PRURITUS [None]
